FAERS Safety Report 17706516 (Version 1)
Quarter: 2020Q2

REPORT INFORMATION
  Report Type: Report from Study
  Country: None (occurrence: AU)
  Receive Date: 20200424
  Receipt Date: 20200424
  Transmission Date: 20200714
  Serious: Yes (Other)
  Sender: FDA-Public Use
  Company Number: AU-ABBVIE-20K-008-3371297-00

PATIENT
  Sex: Male

DRUGS (1)
  1. LUCRIN DEPOT [Suspect]
     Active Substance: LEUPROLIDE ACETATE
     Indication: PROSTATE CANCER
     Route: 030
     Dates: start: 20171031

REACTIONS (6)
  - General physical health deterioration [Unknown]
  - Complication associated with device [Recovering/Resolving]
  - Incontinence [Not Recovered/Not Resolved]
  - Radical prostatectomy [Unknown]
  - Urethral injury [Recovering/Resolving]
  - Artificial urinary sphincter implant [Unknown]

NARRATIVE: CASE EVENT DATE: 2019
